FAERS Safety Report 9792445 (Version 1)
Quarter: 2014Q1

REPORT INFORMATION
  Report Type: Spontaneous
  Country: US (occurrence: US)
  Receive Date: 20140102
  Receipt Date: 20140102
  Transmission Date: 20141002
  Serious: No
  Sender: FDA-Public Use
  Company Number: US-BIOGENIDEC-2013BI123595

PATIENT
  Age: 45 Year
  Sex: Female

DRUGS (8)
  1. TECFIDERA [Suspect]
     Indication: MULTIPLE SCLEROSIS
     Route: 048
     Dates: start: 20131018
  2. BACLOFEN [Concomitant]
  3. BENADRYL ALLERGY [Concomitant]
  4. MIRALAX [Concomitant]
  5. PROZAC [Concomitant]
  6. TEGRETOL [Concomitant]
  7. TIZANIDINE HCL [Concomitant]
  8. ZANAFLEX [Concomitant]

REACTIONS (2)
  - Fatigue [Unknown]
  - Flushing [Unknown]
